FAERS Safety Report 22386565 (Version 1)
Quarter: 2023Q2

REPORT INFORMATION
  Report Type: Report from Study
  Country: US (occurrence: US)
  Receive Date: 20230531
  Receipt Date: 20230531
  Transmission Date: 20230721
  Serious: Yes (Hospitalization, Other)
  Sender: FDA-Public Use
  Company Number: US-ABBVIE-5183050

PATIENT
  Age: 61 Year
  Sex: Female

DRUGS (1)
  1. RINVOQ [Suspect]
     Active Substance: UPADACITINIB
     Indication: Rheumatoid arthritis
     Route: 048
     Dates: start: 20190526, end: 20200525

REACTIONS (7)
  - Surgery [Recovering/Resolving]
  - Mental disorder due to a general medical condition [Not Recovered/Not Resolved]
  - Pneumonia [Recovered/Resolved]
  - Hip fracture [Recovering/Resolving]
  - Polymyositis [Not Recovered/Not Resolved]
  - Hospitalisation [Recovered/Resolved]
  - Therapeutic product effect decreased [Unknown]

NARRATIVE: CASE EVENT DATE: 20230101
